FAERS Safety Report 19761658 (Version 1)
Quarter: 2021Q3

REPORT INFORMATION
  Report Type: Spontaneous
  Country: US (occurrence: US)
  Receive Date: 20210825
  Receipt Date: 20210825
  Transmission Date: 20211014
  Serious: No
  Sender: FDA-Public Use
  Company Number: None

PATIENT
  Sex: Male

DRUGS (1)
  1. TOBRAMYCIN (56AMPS/28DAY) 300MG/5ML LUPIN PHARMACEUTICALS [Suspect]
     Active Substance: TOBRAMYCIN
     Indication: CYSTIC FIBROSIS
     Dosage: 1 AMPULE VIA NEBULIZER TWICE DAILY FOR 28 DAYS ON, THEN 28 DAYS OFF?
     Route: 055
     Dates: start: 20210514

REACTIONS (2)
  - Abdominal pain [None]
  - Major depression [None]
